FAERS Safety Report 10960143 (Version 1)
Quarter: 2015Q1

REPORT INFORMATION
  Report Type: Spontaneous
  Country: CA (occurrence: None)
  Receive Date: 20150326
  Receipt Date: 20150326
  Transmission Date: 20150721
  Serious: Yes (Hospitalization)
  Sender: FDA-Public Use
  Company Number: None

PATIENT
  Age: 60 Year
  Sex: Male
  Weight: 82.9 kg

DRUGS (9)
  1. MODERIBA [Suspect]
     Active Substance: RIBAVIRIN
     Indication: CHRONIC HEPATITIS C
     Dosage: 600MG AM - 600MG PM
     Route: 048
  2. FUROSEMIDE. [Concomitant]
     Active Substance: FUROSEMIDE
  3. INNOHEP [Concomitant]
     Active Substance: TINZAPARIN SODIUM
  4. LACTULOSE. [Concomitant]
     Active Substance: LACTULOSE
  5. HOLKIRA PAK [Suspect]
     Active Substance: DASABUVIR\OMBITASVIR\PARITAPREVIR\RITONAVIR
     Indication: CHRONIC HEPATITIS C
     Route: 048
     Dates: start: 20150227, end: 20150227
  6. SPIRONOLACTONE. [Concomitant]
     Active Substance: SPIRONOLACTONE
  7. CENTRUM [Concomitant]
     Active Substance: VITAMINS
  8. RABEPRAZOLE [Concomitant]
     Active Substance: RABEPRAZOLE
  9. VENTOLIN PEN [Concomitant]

REACTIONS (5)
  - Fatigue [None]
  - Vomiting [None]
  - Incoherent [None]
  - Urinary incontinence [None]
  - Disorientation [None]

NARRATIVE: CASE EVENT DATE: 20150317
